FAERS Safety Report 18041379 (Version 3)
Quarter: 2021Q3

REPORT INFORMATION
  Report Type: Spontaneous
  Country: GB (occurrence: GB)
  Receive Date: 20200719
  Receipt Date: 20210702
  Transmission Date: 20211014
  Serious: Yes (Other)
  Sender: FDA-Public Use
  Company Number: NVSC2020GB179163

PATIENT
  Age: 63 Year
  Sex: Female

DRUGS (12)
  1. CYCLOSPORINE. [Suspect]
     Active Substance: CYCLOSPORINE
     Indication: BONE MARROW TRANSPLANT
     Dosage: 3 MG/KG, QD (STARTING ON DAY 1)
     Route: 042
  2. BICNU [Suspect]
     Active Substance: CARMUSTINE
     Indication: IMMUNOSUPPRESSANT DRUG THERAPY
     Dosage: UNK
     Route: 065
  3. ETOPOSIDE. [Suspect]
     Active Substance: ETOPOSIDE
     Indication: IMMUNOSUPPRESSANT DRUG THERAPY
     Dosage: UNK
     Route: 065
  4. CYCLOSPORINE. [Suspect]
     Active Substance: CYCLOSPORINE
     Indication: PROPHYLAXIS AGAINST GRAFT VERSUS HOST DISEASE
  5. ACICLOVIR [Suspect]
     Active Substance: ACYCLOVIR
     Dosage: 800 MG, QD
     Route: 048
  6. MELPHALAN. [Suspect]
     Active Substance: MELPHALAN
     Indication: IMMUNOSUPPRESSANT DRUG THERAPY
     Dosage: 140 MG/M2
     Route: 065
  7. ACICLOVIR [Suspect]
     Active Substance: ACYCLOVIR
     Indication: ANTIVIRAL PROPHYLAXIS
     Dosage: 400 MG
     Route: 048
  8. FOSCARNET [Suspect]
     Active Substance: FOSCARNET
     Indication: HERPES SIMPLEX
     Dosage: UNK
     Route: 065
  9. CIDOFOVIR. [Suspect]
     Active Substance: CIDOFOVIR
     Indication: HERPES SIMPLEX
     Dosage: UNK ORAL MOUTHWASH
     Route: 061
  10. CYCLOSPORINE. [Suspect]
     Active Substance: CYCLOSPORINE
     Indication: IMMUNOSUPPRESSANT DRUG THERAPY
  11. CYTARABINE. [Suspect]
     Active Substance: CYTARABINE
     Indication: IMMUNOSUPPRESSANT DRUG THERAPY
     Dosage: UNK
     Route: 065
  12. ALEMTUZUMAB [Suspect]
     Active Substance: ALEMTUZUMAB
     Indication: IMMUNOSUPPRESSANT DRUG THERAPY
     Dosage: UNK
     Route: 065

REACTIONS (8)
  - Vomiting [Unknown]
  - Stomatitis [Recovered/Resolved]
  - Renal impairment [Unknown]
  - Hyperkalaemia [Unknown]
  - Herpes simplex [Recovered/Resolved]
  - Off label use [Unknown]
  - Mouth haemorrhage [Recovered/Resolved]
  - Pathogen resistance [Unknown]
